FAERS Safety Report 19161633 (Version 1)
Quarter: 2021Q2

REPORT INFORMATION
  Report Type: Spontaneous
  Country: US (occurrence: US)
  Receive Date: 20210421
  Receipt Date: 20210421
  Transmission Date: 20210717
  Serious: No
  Sender: FDA-Public Use
  Company Number: US-ASTRAZENECA-2021A327776

PATIENT
  Sex: Female
  Weight: 64 kg

DRUGS (6)
  1. KEPPRA [Concomitant]
     Active Substance: LEVETIRACETAM
  2. VITAMIN C [Concomitant]
     Active Substance: ASCORBIC ACID
  3. ASPIRIN. [Concomitant]
     Active Substance: ASPIRIN
  4. CENTRUM SILVER WOMEN [Concomitant]
  5. TURMERIC [Concomitant]
     Active Substance: HERBALS\TURMERIC
  6. TAGRISSO [Suspect]
     Active Substance: OSIMERTINIB
     Indication: LUNG NEOPLASM MALIGNANT
     Route: 048
     Dates: start: 20210409

REACTIONS (4)
  - Pain [Recovering/Resolving]
  - Neck pain [Unknown]
  - Fatigue [Unknown]
  - Headache [Recovering/Resolving]
